FAERS Safety Report 5278067-0 (Version None)
Quarter: 2007Q1

REPORT INFORMATION
  Report Type: 
  Country: None (occurrence: None)
  Receive Date: 20070321
  Receipt Date: 20070309
  Transmission Date: 20070707
  Serious: Yes (Other)
  Sender: FDA-Public Use
  Company Number: 2007RR-06313

PATIENT
  Sex: 0

DRUGS (1)
  1. FENOFIBRATE [Suspect]
     Indication: HYPERCHOLESTEROLAEMIA

REACTIONS (2)
  - BLOOD CREATININE INCREASED [None]
  - MYOPATHY [None]
